FAERS Safety Report 11514592 (Version 4)
Quarter: 2015Q4

REPORT INFORMATION
  Report Type: Spontaneous
  Country: JP (occurrence: JP)
  Receive Date: 20150916
  Receipt Date: 20151102
  Transmission Date: 20160304
  Serious: Yes (Hospitalization)
  Sender: FDA-Public Use
  Company Number: JP-009507513-1506JPN011918

PATIENT
  Age: 53 Year
  Sex: Female
  Weight: 107 kg

DRUGS (49)
  1. JANUVIA [Suspect]
     Active Substance: SITAGLIPTIN PHOSPHATE
     Dosage: 12.5 MG, QD
     Route: 048
     Dates: start: 20140617
  2. NOVORAPID 70 MIX [Concomitant]
     Dosage: UNK, TID
     Route: 051
     Dates: start: 20141121, end: 20150109
  3. NOVORAPID 70 MIX [Concomitant]
     Dosage: UNK, TID
     Route: 051
     Dates: start: 20150110, end: 20150113
  4. ALFACALCIDOL [Concomitant]
     Active Substance: ALFACALCIDOL
     Indication: PROPHYLAXIS
     Dosage: 250 NG, QD
     Route: 048
     Dates: start: 20110812
  5. SYMBICORT [Concomitant]
     Active Substance: BUDESONIDE\FORMOTEROL FUMARATE DIHYDRATE
     Indication: ASTHMA
     Dosage: FORMULATION: INHALED PREPARATION, ROUTE: INHALATION
     Route: 055
     Dates: start: 20100702
  6. AIROMIR [Concomitant]
     Active Substance: ALBUTEROL SULFATE
     Indication: ASTHMA
     Dosage: 2 SPRAYS, AS NEEDED
     Route: 055
     Dates: start: 20100630
  7. GASCON (DIMETHICONE) [Concomitant]
     Active Substance: DIMETHICONE
     Indication: PROPHYLAXIS
     Dosage: 40 MG, TID, ALSO REPORTED: AS NEEDED
     Route: 048
     Dates: start: 20130526
  8. LOCOID [Concomitant]
     Active Substance: HYDROCORTISONE BUTYRATE
     Dosage: ONCE TO TWIDE/DAY, DAILY DOSAGE UNKNOWN
     Dates: start: 20140423, end: 20140522
  9. NOVORAPID 70 MIX [Concomitant]
     Dosage: UNK, TID
     Route: 051
     Dates: start: 20140725, end: 20141120
  10. SODIUM BICARBONATE. [Concomitant]
     Active Substance: SODIUM BICARBONATE
     Indication: PROPHYLAXIS
     Dosage: UNK, TID
     Route: 048
     Dates: start: 20101027
  11. FEBURIC [Concomitant]
     Active Substance: FEBUXOSTAT
     Indication: HYPERURICAEMIA
     Dosage: UNK, QD
     Route: 048
     Dates: start: 20120926
  12. PRANLUKAST [Concomitant]
     Active Substance: PRANLUKAST
     Indication: ASTHMA
     Dosage: 450 MG, BID
     Route: 048
     Dates: start: 20101124
  13. ACETAMINOPHEN. [Concomitant]
     Active Substance: ACETAMINOPHEN
     Indication: HEADACHE
     Dosage: 400 MG, QD, ALSO REPORTED: AS NEEDED
     Route: 048
     Dates: start: 20100907, end: 20140611
  14. TERBINAFINE HYDROCHLORIDE. [Concomitant]
     Active Substance: TERBINAFINE HYDROCHLORIDE
     Indication: TINEA INFECTION
     Route: 061
  15. MEDICON (DEXTROMETHORPHAN HYDROBROMIDE) [Concomitant]
     Active Substance: DEXTROMETHORPHAN HYDROBROMIDE
     Dosage: 15 MG, TID
     Route: 048
     Dates: start: 20141203, end: 20141205
  16. NIFEDIPINE. [Concomitant]
     Active Substance: NIFEDIPINE
     Indication: HYPERTENSION
     Dosage: ONCE TO TWICE/DAY
     Route: 048
     Dates: start: 20090608
  17. ESTAZOLAM. [Concomitant]
     Active Substance: ESTAZOLAM
     Indication: INSOMNIA
     Dosage: 2 MG, QD
     Route: 048
     Dates: start: 20130306
  18. ACETAMINOPHEN. [Concomitant]
     Active Substance: ACETAMINOPHEN
     Dosage: 400 MG, QD, ALSO REPORTED: AS NEEDED
     Route: 048
     Dates: start: 20140615, end: 20140929
  19. ACETAMINOPHEN. [Concomitant]
     Active Substance: ACETAMINOPHEN
     Dosage: 400 MG, QD, ALSO REPORTED: AS NEEDED
     Route: 048
     Dates: start: 20150420, end: 20150505
  20. NOVORAPID 70 MIX [Concomitant]
     Dosage: UNK, TID
     Route: 051
     Dates: start: 20150114, end: 20150123
  21. NOVORAPID 70 MIX [Concomitant]
     Dosage: 15 UNDER 1000 UNIT, TID
     Dates: start: 20150412
  22. FUROSEMIDE. [Concomitant]
     Active Substance: FUROSEMIDE
     Indication: OEDEMA
     Dosage: UNK, ONCE TO 4 TIMES/DAY
     Route: 048
     Dates: start: 20131127
  23. KREMEZIN [Concomitant]
     Active Substance: ACTIVATED CHARCOAL
     Indication: PROPHYLAXIS
     Dosage: UNK, BID; FORMULATION: FGR
     Route: 048
     Dates: start: 20140129
  24. NESP [Concomitant]
     Active Substance: DARBEPOETIN ALFA
     Indication: ANAEMIA
     Dosage: 180 MICROGRAM, QM
     Route: 051
     Dates: start: 20120104
  25. ACELIO [Concomitant]
     Active Substance: ACETAMINOPHEN
     Indication: PROPHYLAXIS
     Dosage: UNK
     Route: 042
     Dates: start: 20140616
  26. NOVORAPID 70 MIX [Concomitant]
     Dosage: UNK, TID
     Route: 051
     Dates: start: 20140622, end: 20140724
  27. NOVORAPID 70 MIX [Concomitant]
     Dosage: 20 UNDER 1000 UNIT, TID
     Route: 051
     Dates: start: 20150124, end: 20150319
  28. LOSARTAN POTASSIUM. [Concomitant]
     Active Substance: LOSARTAN POTASSIUM
     Indication: HYPERTENSION
     Dosage: 25 MG, QD
     Route: 048
     Dates: start: 20120926, end: 20150115
  29. ATORVASTATIN [Concomitant]
     Active Substance: ATORVASTATIN
     Indication: DYSLIPIDAEMIA
     Dosage: 5 MG, QD
     Route: 048
     Dates: start: 20110713
  30. ETIZOLAM [Concomitant]
     Active Substance: ETIZOLAM
     Indication: INSOMNIA
     Dosage: 1 MG, QD
     Route: 048
     Dates: start: 20090530
  31. ROZEREM [Concomitant]
     Active Substance: RAMELTEON
     Indication: INSOMNIA
     Dosage: 8 MG, QD
     Route: 048
     Dates: start: 20131205
  32. MOSAPRIDE CITRATE [Concomitant]
     Active Substance: MOSAPRIDE CITRATE
     Indication: PROPHYLAXIS OF NAUSEA AND VOMITING
     Dosage: 5 MG, TID
     Route: 048
     Dates: start: 20131127
  33. KERATINAMIN [Concomitant]
     Active Substance: UREA
     Indication: PROPHYLAXIS
     Dosage: ONCE TO TWICE/DAY
     Route: 061
  34. MEDICON (DEXTROMETHORPHAN HYDROBROMIDE) [Concomitant]
     Active Substance: DEXTROMETHORPHAN HYDROBROMIDE
     Dosage: 15 MG, TID
     Route: 048
     Dates: start: 20150511, end: 20150514
  35. HIRUDOID [Concomitant]
     Active Substance: GLYCOSAMINOGLYCANS
     Dosage: TWICE TO 3 TIMES/DAY, DAILY DOSAGE UNKNOWN
     Route: 061
     Dates: start: 20140424, end: 20140522
  36. NOVORAPID 70 MIX [Concomitant]
     Indication: DIABETES MELLITUS
     Dosage: UNK, TID
     Route: 051
     Dates: start: 20140131, end: 20140614
  37. PURSENNID (SENNOSIDES) [Concomitant]
     Indication: CONSTIPATION
     Dosage: 48 MG, QD
     Route: 048
     Dates: start: 20100108
  38. ACETAMINOPHEN. [Concomitant]
     Active Substance: ACETAMINOPHEN
     Dosage: 400 MG, QD, ALSO REPORTED: AS NEEDED
     Route: 048
     Dates: start: 20141003, end: 20150416
  39. ACETAMINOPHEN. [Concomitant]
     Active Substance: ACETAMINOPHEN
     Dosage: 500 MG, BID
     Route: 048
     Dates: start: 20150506, end: 20150507
  40. ACETAMINOPHEN. [Concomitant]
     Active Substance: ACETAMINOPHEN
     Dosage: 400 MG, QD, ALSO REPORTED: AS NEEDED
     Route: 048
     Dates: start: 20150508
  41. LANSOPRAZOLE. [Concomitant]
     Active Substance: LANSOPRAZOLE
     Indication: PROPHYLAXIS
     Dosage: 15 MG, QD
     Dates: start: 20140926
  42. TERBINAFINE. [Concomitant]
     Active Substance: TERBINAFINE
     Indication: TINEA INFECTION
     Dosage: UNK, QD
     Route: 061
  43. LORAZEPAM. [Concomitant]
     Active Substance: LORAZEPAM
     Dosage: 1 MG, QD
     Route: 048
     Dates: start: 20140522
  44. FK POWDER [Concomitant]
     Indication: PROPHYLAXIS
     Dosage: 1.3 G, TID
     Route: 048
     Dates: start: 20100204
  45. MEDICON (DEXTROMETHORPHAN HYDROBROMIDE) [Concomitant]
     Active Substance: DEXTROMETHORPHAN HYDROBROMIDE
     Indication: PRODUCTIVE COUGH
     Dosage: 15 MG, TID
     Route: 048
     Dates: start: 20140522, end: 20140526
  46. JANUVIA [Suspect]
     Active Substance: SITAGLIPTIN PHOSPHATE
     Indication: TYPE 2 DIABETES MELLITUS
     Dosage: 12.5 MG, QD
     Route: 048
     Dates: start: 20140328, end: 20140613
  47. NOVORAPID 70 MIX [Concomitant]
     Dosage: 18 UNDER 1000 UNIT, TID
     Route: 051
     Dates: start: 20150320, end: 20150411
  48. ARGAMATE GRANULES [Concomitant]
     Indication: PROPHYLAXIS
     Dosage: TWICE TO 3 TIMES/DAY
     Route: 048
     Dates: start: 20101029
  49. DINAGEST [Concomitant]
     Indication: UTERINE LEIOMYOMA
     Dosage: 2 MG, QD
     Route: 048
     Dates: start: 20120510, end: 20140920

REACTIONS (22)
  - Chest pain [Recovering/Resolving]
  - Cystitis [Recovering/Resolving]
  - Sleep apnoea syndrome [Recovering/Resolving]
  - Pruritus [Recovering/Resolving]
  - Oedema [Recovering/Resolving]
  - Renal impairment [Not Recovered/Not Resolved]
  - Insomnia [Recovering/Resolving]
  - Seborrhoeic dermatitis [Recovering/Resolving]
  - Duodenal polyp [Recovering/Resolving]
  - Diabetic neuropathy [Not Recovered/Not Resolved]
  - Myocardial ischaemia [Not Recovered/Not Resolved]
  - Weight decreased [Not Recovered/Not Resolved]
  - Anaemia [Recovering/Resolving]
  - Vertigo [Recovering/Resolving]
  - Appendicitis [Recovering/Resolving]
  - Enterocolitis [Recovered/Resolved]
  - Seborrhoeic dermatitis [Recovering/Resolving]
  - Retinopathy [Not Recovered/Not Resolved]
  - Large intestine polyp [Recovering/Resolving]
  - Anastomotic complication [Recovering/Resolving]
  - Skin erosion [Recovering/Resolving]
  - Upper respiratory tract inflammation [Recovered/Resolved]

NARRATIVE: CASE EVENT DATE: 20140422
